FAERS Safety Report 23907843 (Version 1)
Quarter: 2024Q2

REPORT INFORMATION
  Report Type: Spontaneous
  Country: US (occurrence: None)
  Receive Date: 20240524
  Receipt Date: 20240524
  Transmission Date: 20240716
  Serious: Yes (Death)
  Sender: FDA-Public Use
  Company Number: None

PATIENT
  Age: 67 Year
  Sex: Male
  Weight: 134.5 kg

DRUGS (1)
  1. CARVYKTI [Suspect]
     Active Substance: CILTACABTAGENE AUTOLEUCEL
     Dosage: OTHER FREQUENCY : 1X10E8;?
     Route: 042
     Dates: start: 20240418, end: 20240418

REACTIONS (6)
  - Lactic acidosis [None]
  - Hypotension [None]
  - Febrile neutropenia [None]
  - Cytokine release syndrome [None]
  - Serum ferritin increased [None]
  - Cytopenia [None]

NARRATIVE: CASE EVENT DATE: 20240430
